FAERS Safety Report 11279385 (Version 1)
Quarter: 2015Q3

REPORT INFORMATION
  Report Type: Report from Study
  Country: GB (occurrence: GB)
  Receive Date: 20150716
  Receipt Date: 20150716
  Transmission Date: 20151125
  Serious: Yes (Other)
  Sender: FDA-Public Use
  Company Number: GB-PFIZER INC-2015229066

PATIENT
  Age: 70 Year
  Sex: Female

DRUGS (8)
  1. PHENYTOIN. [Suspect]
     Active Substance: PHENYTOIN
     Indication: SEIZURE
  2. PHENOBARBITONE /00023201/ [Concomitant]
     Indication: COMPLEX PARTIAL SEIZURES
     Dosage: UNK
  3. CARBAMAZEPINE. [Concomitant]
     Active Substance: CARBAMAZEPINE
     Indication: COMPLEX PARTIAL SEIZURES
     Dosage: UNK
  4. CARBAMAZEPINE. [Concomitant]
     Active Substance: CARBAMAZEPINE
     Indication: SEIZURE
  5. CLONAZEPAM. [Concomitant]
     Active Substance: CLONAZEPAM
     Indication: SEIZURE
  6. PHENYTOIN. [Suspect]
     Active Substance: PHENYTOIN
     Indication: COMPLEX PARTIAL SEIZURES
     Dosage: UNK
  7. PHENOBARBITONE /00023201/ [Concomitant]
     Indication: SEIZURE
  8. CLONAZEPAM. [Concomitant]
     Active Substance: CLONAZEPAM
     Indication: COMPLEX PARTIAL SEIZURES
     Dosage: UNK

REACTIONS (1)
  - Neurodegenerative disorder [Unknown]
